FAERS Safety Report 21438990 (Version 1)
Quarter: 2022Q4

REPORT INFORMATION
  Report Type: Spontaneous
  Country: CN (occurrence: CN)
  Receive Date: 20221011
  Receipt Date: 20221011
  Transmission Date: 20230112
  Serious: Yes (Other)
  Sender: FDA-Public Use
  Company Number: CN-ORGANON-O2210CHN000177

PATIENT
  Age: 53 Year
  Sex: Male
  Weight: 60 kg

DRUGS (2)
  1. DIPROSPAN [Suspect]
     Active Substance: BETAMETHASONE DIPROPIONATE\BETAMETHASONE SODIUM PHOSPHATE
     Indication: Urticaria
     Dosage: 1 MILLILITER, QD
     Route: 030
     Dates: start: 20220925, end: 20220925
  2. HISMANAL [Concomitant]
     Active Substance: ASTEMIZOLE
     Indication: Urticaria
     Dosage: 10 MILLIGRAM (MG), QD
     Route: 048
     Dates: start: 20220925, end: 20220925

REACTIONS (1)
  - Anaphylactic shock [Recovered/Resolved]

NARRATIVE: CASE EVENT DATE: 20220925
